FAERS Safety Report 13061605 (Version 1)
Quarter: 2016Q4

REPORT INFORMATION
  Report Type: Spontaneous
  Country: US (occurrence: US)
  Receive Date: 20161226
  Receipt Date: 20161226
  Transmission Date: 20170207
  Serious: No
  Sender: FDA-Public Use
  Company Number: US-NOVEN PHARMACEUTICALS, INC.-US2016001330

PATIENT

DRUGS (3)
  1. MINIVELLE [Suspect]
     Active Substance: ESTRADIOL
     Indication: HOT FLUSH
     Dosage: 0.05 MG, EVERY 3 DAYS
     Route: 062
     Dates: start: 2016
  2. MINIVELLE [Suspect]
     Active Substance: ESTRADIOL
     Indication: MOOD SWINGS
  3. MINIVELLE [Suspect]
     Active Substance: ESTRADIOL
     Indication: HORMONE REPLACEMENT THERAPY
     Dosage: 0.05 MG, EVERY 3 DAYS
     Route: 062
     Dates: start: 201603, end: 2016

REACTIONS (5)
  - Off label use [Unknown]
  - Drug dose omission [Recovered/Resolved]
  - Product adhesion issue [Not Recovered/Not Resolved]
  - Drug effect decreased [Unknown]
  - Hot flush [Unknown]

NARRATIVE: CASE EVENT DATE: 2016
